FAERS Safety Report 10018491 (Version 1)
Quarter: 2014Q1

REPORT INFORMATION
  Report Type: Report from Study
  Country: IT (occurrence: IT)
  Receive Date: 20140318
  Receipt Date: 20140318
  Transmission Date: 20141002
  Serious: Yes (Death)
  Sender: FDA-Public Use
  Company Number: IT-BAXTER-2014BAX013967

PATIENT
  Sex: 0

DRUGS (1)
  1. HOLOXAN [Suspect]
     Indication: SARCOMA
     Dosage: 1 G/SQM
     Route: 042

REACTIONS (1)
  - Death [Fatal]
